FAERS Safety Report 5245996-3 (Version None)
Quarter: 2007Q1

REPORT INFORMATION
  Report Type: 
  Country: None (occurrence: None)
  Receive Date: 20070220
  Receipt Date: 20070206
  Transmission Date: 20070707
  Serious: Yes (Disabling, Other)
  Sender: FDA-Public Use
  Company Number: US019254

PATIENT
  Age: 53 Year
  Sex: Female

DRUGS (8)
  1. PROVIGIL [Suspect]
     Indication: SEDATION
     Dosage: 100 MG BID ORAL
     Route: 048
     Dates: start: 20061121, end: 20061211
  2. QUETIAPINE FUMARATE [Concomitant]
  3. PRIADEL /00033702/ [Concomitant]
  4. VENLAFAXINE HCL [Concomitant]
  5. LEVOTHYROXINE SODIUM [Concomitant]
  6. PROCYCLIDINE HYDROCHLORIDE 2MG TAB [Concomitant]
  7. ZOPICLONE [Concomitant]
  8. INHALERS [Concomitant]

REACTIONS (4)
  - CONDITION AGGRAVATED [None]
  - DYSKINESIA [None]
  - OEDEMA MOUTH [None]
  - ORAL PAIN [None]
